FAERS Safety Report 24773090 (Version 1)
Quarter: 2024Q4

REPORT INFORMATION
  Report Type: Spontaneous
  Country: SE (occurrence: SE)
  Receive Date: 20241225
  Receipt Date: 20241225
  Transmission Date: 20250115
  Serious: Yes (Hospitalization)
  Sender: BRAEBURN PHARMACEUTICALS
  Company Number: SE-Camurus-CAM-2024-004183

PATIENT
  Sex: Male

DRUGS (1)
  1. BUPRENORPHINE [Suspect]
     Active Substance: BUPRENORPHINE
     Indication: Product used for unknown indication
     Dosage: NOT REPORTED
     Route: 065

REACTIONS (1)
  - Depressed level of consciousness [Unknown]
